FAERS Safety Report 7027456-2 (Version None)
Quarter: 2010Q4

REPORT INFORMATION
  Report Type: 
  Country: None (occurrence: None)
  Receive Date: 20101001
  Receipt Date: 20101001
  Transmission Date: 20110411
  Serious: Yes (Hospitalization)
  Sender: FDA-Public Use
  Company Number: None

PATIENT
  Age: 66 Year
  Sex: Male
  Weight: 142.7 kg

DRUGS (6)
  1. PEG-INTRON [Suspect]
     Indication: ATRIAL FIBRILLATION
     Dosage: 882 MCG WEEKLY SUBCUTANEOUS
     Route: 058
     Dates: start: 20100713
  2. PEG-INTRON [Suspect]
     Indication: CARDIAC FAILURE CONGESTIVE
     Dosage: 882 MCG WEEKLY SUBCUTANEOUS
     Route: 058
     Dates: start: 20100713
  3. PEG-INTRON [Suspect]
     Indication: MALIGNANT MELANOMA
     Dosage: 882 MCG WEEKLY SUBCUTANEOUS
     Route: 058
     Dates: start: 20100713
  4. PEG-INTRON [Suspect]
     Indication: ATRIAL FIBRILLATION
     Dosage: 882 MCG WEEKLY SUBCUTANEOUS
     Route: 058
     Dates: start: 20100914
  5. PEG-INTRON [Suspect]
     Indication: CARDIAC FAILURE CONGESTIVE
     Dosage: 882 MCG WEEKLY SUBCUTANEOUS
     Route: 058
     Dates: start: 20100914
  6. PEG-INTRON [Suspect]
     Indication: MALIGNANT MELANOMA
     Dosage: 882 MCG WEEKLY SUBCUTANEOUS
     Route: 058
     Dates: start: 20100914

REACTIONS (2)
  - CARDIAC FAILURE CONGESTIVE [None]
  - FAILURE TO THRIVE [None]
